FAERS Safety Report 13838484 (Version 3)
Quarter: 2020Q2

REPORT INFORMATION
  Report Type: Report from Study
  Country: US (occurrence: US)
  Receive Date: 20170807
  Receipt Date: 20200408
  Transmission Date: 20200713
  Serious: Yes (Other)
  Sender: FDA-Public Use
  Company Number: US-ROCHE-1974026

PATIENT

DRUGS (4)
  1. TRASTUZUMAB. [Suspect]
     Active Substance: TRASTUZUMAB
     Dosage: 2-4 MG MAINTENANCE DOSE ON DAY 1 OF 21-DAY CYCLE
     Route: 042
  2. EVEROLIMUS. [Suspect]
     Active Substance: EVEROLIMUS
     Dosage: 2.5-10 MG ON DAY 1 OF 21-DAY CYCLE
     Route: 048
  3. LETROZOLE. [Suspect]
     Active Substance: LETROZOLE
     Dosage: ON DAY 1 OF 21-DAY CYCLE
     Route: 048
  4. TRASTUZUMAB. [Suspect]
     Active Substance: TRASTUZUMAB
     Dosage: 4-8 MG LOADING DOSE ON DAY 1 OF 21-DAY CYCLE
     Route: 042

REACTIONS (7)
  - Anaemia [Unknown]
  - Transaminases increased [Unknown]
  - Hyperglycaemia [Unknown]
  - Neutropenia [Unknown]
  - Thrombocytopenia [Unknown]
  - Mucosal inflammation [Unknown]
  - Headache [Unknown]
